FAERS Safety Report 7374033-X (Version None)
Quarter: 2011Q1

REPORT INFORMATION
  Report Type: 
  Country: None (occurrence: None)
  Receive Date: 20110325
  Receipt Date: 20110314
  Transmission Date: 20110831
  Serious: Yes (Other)
  Sender: FDA-Public Use
  Company Number: BE-BAYER-2011-022763

PATIENT
  Age: 19 Year
  Sex: Female

DRUGS (1)
  1. YAZ 0,02MG/3MG, FILMOMHULDE TABLETTEN [Suspect]
     Indication: CONTRACEPTION

REACTIONS (1)
  - POLYARTERITIS NODOSA [None]
